FAERS Safety Report 5234037-X (Version None)
Quarter: 2007Q1

REPORT INFORMATION
  Report Type: 
  Country: None (occurrence: None)
  Receive Date: 20070208
  Receipt Date: 20070201
  Transmission Date: 20070707
  Serious: Yes (Hospitalization)
  Sender: FDA-Public Use
  Company Number: FR-BOEHRINGER INGELHEIM GMBH, GERMANY-2007-FF-00001FF

PATIENT
  Sex: Male
  Weight: 86 kg

DRUGS (2)
  1. MECIR LP 0.4 [Suspect]
     Indication: BENIGN PROSTATIC HYPERPLASIA
     Route: 048
  2. INIPOMP [Concomitant]
     Route: 048

REACTIONS (2)
  - BILE DUCT STONE [None]
  - HEPATITIS CHOLESTATIC [None]
